FAERS Safety Report 6279131-X (Version None)
Quarter: 2009Q3

REPORT INFORMATION
  Report Type: 
  Country: None (occurrence: None)
  Receive Date: 20090720
  Receipt Date: 20090720
  Transmission Date: 20100115
  Serious: No
  Sender: FDA-Public Use
  Company Number: None

PATIENT
  Age: 23 Year
  Sex: Female
  Weight: 48.9885 kg

DRUGS (1)
  1. LEXAPRO [Suspect]
     Indication: GENERALISED ANXIETY DISORDER
     Dosage: 10MG ONCE A DAY PO
     Route: 048
     Dates: start: 20080915, end: 20090301

REACTIONS (10)
  - FATIGUE [None]
  - FEELING ABNORMAL [None]
  - LOSS OF LIBIDO [None]
  - MENORRHAGIA [None]
  - MENSTRUATION IRREGULAR [None]
  - NAUSEA [None]
  - PALPITATIONS [None]
  - SEDATION [None]
  - SEXUAL DYSFUNCTION [None]
  - SOMNOLENCE [None]
